FAERS Safety Report 6781619-X (Version None)
Quarter: 2010Q2

REPORT INFORMATION
  Report Type: 
  Country: None (occurrence: None)
  Receive Date: 20100617
  Receipt Date: 20100617
  Transmission Date: 20101027
  Serious: Yes (Other)
  Sender: FDA-Public Use
  Company Number: None

PATIENT
  Age: 32 Year
  Sex: Female
  Weight: 55.7924 kg

DRUGS (4)
  1. DEXAMETHASONE [Suspect]
     Indication: MIGRAINE
     Dosage: 4 MG AS NEEDED - ONCE PO
     Route: 048
     Dates: start: 20100616, end: 20100616
  2. MAXALT [Concomitant]
  3. ADDERALL 10 [Concomitant]
  4. FLAGEAL [Concomitant]

REACTIONS (11)
  - ABDOMINAL PAIN UPPER [None]
  - CONFUSIONAL STATE [None]
  - DIZZINESS [None]
  - EYE PAIN [None]
  - FEELING HOT [None]
  - HEADACHE [None]
  - HYPERHIDROSIS [None]
  - LETHARGY [None]
  - MEMORY IMPAIRMENT [None]
  - MENTAL IMPAIRMENT [None]
  - VISUAL IMPAIRMENT [None]
